FAERS Safety Report 10892720 (Version 4)
Quarter: 2015Q2

REPORT INFORMATION
  Report Type: Spontaneous
  Country: US (occurrence: US)
  Receive Date: 20150306
  Receipt Date: 20150527
  Transmission Date: 20150821
  Serious: Yes (Death, Hospitalization, Other)
  Sender: FDA-Public Use
  Company Number: US-009507513-1503USA002891

PATIENT
  Sex: Male
  Weight: 141.95 kg

DRUGS (2)
  1. JANUVIA [Suspect]
     Active Substance: SITAGLIPTIN PHOSPHATE
     Indication: TYPE 2 DIABETES MELLITUS
     Dosage: 100 MG, QD
     Route: 048
     Dates: start: 20130214, end: 20140416
  2. JANUMET [Suspect]
     Active Substance: METFORMIN HYDROCHLORIDE\SITAGLIPTIN PHOSPHATE
     Indication: TYPE 2 DIABETES MELLITUS
     Dosage: 100 MG/1000 MG, QD
     Route: 048
     Dates: start: 20121102, end: 20130213

REACTIONS (29)
  - Small intestinal resection [Unknown]
  - Hypothyroidism [Unknown]
  - Hypokalaemia [Unknown]
  - Drug ineffective [Unknown]
  - Atrial fibrillation [Recovered/Resolved]
  - Deep vein thrombosis [Unknown]
  - Vena cava filter insertion [Unknown]
  - Hydronephrosis [Unknown]
  - Anaemia postoperative [Unknown]
  - Gastrooesophageal reflux disease [Unknown]
  - Arthralgia [Unknown]
  - Pain in extremity [Unknown]
  - Diarrhoea [Unknown]
  - Metastases to lymph nodes [Unknown]
  - Arteriosclerosis coronary artery [Unknown]
  - Inappropriate schedule of drug administration [Unknown]
  - Asthma [Unknown]
  - Bronchospasm [Unknown]
  - Thyroid mass [Unknown]
  - Spinal osteoarthritis [Unknown]
  - Leukocytosis [Unknown]
  - Hypertension [Unknown]
  - Pancreatic carcinoma metastatic [Fatal]
  - Metastases to small intestine [Unknown]
  - Metastases to liver [Unknown]
  - Sleep apnoea syndrome [Unknown]
  - Metastases to abdominal wall [Unknown]
  - Hyperlipidaemia [Unknown]
  - Thrombophlebitis superficial [Unknown]

NARRATIVE: CASE EVENT DATE: 20121102
